FAERS Safety Report 5512930-8 (Version None)
Quarter: 2007Q4

REPORT INFORMATION
  Report Type: 
  Country: None (occurrence: None)
  Receive Date: 20071108
  Receipt Date: 20071108
  Transmission Date: 20080405
  Serious: Yes (Other)
  Sender: FDA-Public Use
  Company Number: None

PATIENT
  Age: 64 Year
  Sex: Male
  Weight: 76.2043 kg

DRUGS (3)
  1. TOPOSAR [Suspect]
     Indication: SMALL CELL LUNG CANCER STAGE UNSPECIFIED
     Dosage: 180 MG IV IN 500ML D5W/.45% NS  1X  IV
     Route: 042
     Dates: start: 20071107, end: 20071107
  2. CARBOPLATIN [Concomitant]
  3. ONDANSETRON [Concomitant]

REACTIONS (2)
  - DYSPNOEA [None]
  - THROAT TIGHTNESS [None]
